FAERS Safety Report 6361668-6 (Version None)
Quarter: 2009Q3

REPORT INFORMATION
  Report Type: 
  Country: None (occurrence: None)
  Receive Date: 20090918
  Receipt Date: 20090911
  Transmission Date: 20100115
  Serious: Yes (Hospitalization)
  Sender: FDA-Public Use
  Company Number: US-MERCK-0909USA01265

PATIENT
  Age: 70 Year
  Sex: Male

DRUGS (11)
  1. DECADRON [Suspect]
     Indication: MULTIPLE MYELOMA
     Route: 048
  2. THALIDOMIDE [Suspect]
     Indication: MULTIPLE MYELOMA
     Route: 065
  3. MELOXICAM [Suspect]
     Indication: MULTIPLE MYELOMA
     Route: 065
  4. HYDROCODONE [Concomitant]
     Indication: MULTIPLE MYELOMA
     Route: 065
  5. RANITIDINE HYDROCHLORIDE [Concomitant]
     Indication: MULTIPLE MYELOMA
     Route: 065
  6. OMEPRAZOLE [Concomitant]
     Indication: MULTIPLE MYELOMA
     Route: 065
  7. LIDOCAINE [Concomitant]
     Indication: MULTIPLE MYELOMA
     Route: 065
  8. POLYETHYLENE GLYCOL [Concomitant]
     Indication: MULTIPLE MYELOMA
     Route: 065
  9. TESTOSTERONE ENANTHATE [Concomitant]
     Indication: MULTIPLE MYELOMA
     Route: 065
  10. PAMIDRONATE DISODIUM [Concomitant]
     Route: 065
  11. PROMETHAZINE HYDROCHLORIDE [Concomitant]
     Route: 065

REACTIONS (4)
  - ACUTE GENERALISED EXANTHEMATOUS PUSTULOSIS [None]
  - BACK PAIN [None]
  - OROPHARYNGEAL PAIN [None]
  - PYREXIA [None]
